FAERS Safety Report 7006474-4 (Version None)
Quarter: 2010Q3

REPORT INFORMATION
  Report Type: 
  Country: None (occurrence: None)
  Receive Date: 20100921
  Receipt Date: 20100916
  Transmission Date: 20110219
  Serious: Yes (Hospitalization)
  Sender: FDA-Public Use
  Company Number: US-GILEAD-2010-0031734

PATIENT
  Age: 81 Year
  Sex: Female
  Weight: 49.486 kg

DRUGS (9)
  1. LETAIRIS [Suspect]
     Indication: PULMONARY ARTERIAL HYPERTENSION
     Route: 048
     Dates: start: 20070824
  2. ASPIRIN [Concomitant]
  3. XYZAL [Concomitant]
  4. CARDIZEM [Concomitant]
  5. TRAZODONE HCL [Concomitant]
  6. MULTI-VITAMIN [Concomitant]
  7. SYNTHROID [Concomitant]
  8. REGLAN [Concomitant]
  9. PRILOSEC [Concomitant]

REACTIONS (1)
  - INTESTINAL OBSTRUCTION [None]
